FAERS Safety Report 12543462 (Version 1)
Quarter: 2016Q3

REPORT INFORMATION
  Report Type: Spontaneous
  Country: US (occurrence: US)
  Receive Date: 20160711
  Receipt Date: 20160711
  Transmission Date: 20161109
  Serious: No
  Sender: FDA-Public Use
  Company Number: US-TEVA-660824USA

PATIENT
  Sex: Female
  Weight: 76.27 kg

DRUGS (5)
  1. VITAMIN D [Concomitant]
     Active Substance: CHOLECALCIFEROL
     Indication: VITAMIN D DEFICIENCY
     Route: 048
  2. VENLAFAXINE [Suspect]
     Active Substance: VENLAFAXINE HYDROCHLORIDE
     Indication: DEPRESSION
     Route: 048
     Dates: start: 201604
  3. XARELTO [Concomitant]
     Active Substance: RIVAROXABAN
     Indication: THROMBOSIS
     Dosage: ONCE EVERY MORNING BY MOUTH
  4. VOLTAREN [Concomitant]
     Active Substance: DICLOFENAC SODIUM
     Dosage: EVERY MORNING NIGHT AND DURING THE DAY 6 TO 8 TIMES AS NEEDED
     Route: 061
  5. OXYCODONE [Concomitant]
     Active Substance: OXYCODONE
     Indication: PAIN
     Dosage: 2 TO 3 TIMES A DAYAS NEEDED
     Route: 048

REACTIONS (4)
  - Dizziness [Recovering/Resolving]
  - Fall [Unknown]
  - Joint swelling [Recovered/Resolved]
  - Contusion [Recovering/Resolving]

NARRATIVE: CASE EVENT DATE: 2016
